FAERS Safety Report 10584021 (Version 3)
Quarter: 2014Q4

REPORT INFORMATION
  Report Type: Spontaneous
  Country: NO (occurrence: NO)
  Receive Date: 20141114
  Receipt Date: 20141224
  Transmission Date: 20150529
  Serious: Yes (Hospitalization)
  Sender: FDA-Public Use
  Company Number: NO-JNJFOC-20140210809

PATIENT
  Age: 2 Month
  Sex: Female
  Weight: 4.74 kg

DRUGS (2)
  1. TOPIRAMATE. [Suspect]
     Active Substance: TOPIRAMATE
     Indication: EPILEPSY
     Dosage: PARENT DOSING.
     Route: 063
  2. TOPIRAMATE. [Suspect]
     Active Substance: TOPIRAMATE
     Indication: EPILEPSY
     Dosage: PARENT DOSING.
     Route: 064

REACTIONS (4)
  - Weight gain poor [Recovered/Resolved]
  - Foetal exposure during pregnancy [Recovered/Resolved]
  - Diarrhoea [Recovered/Resolved]
  - Exposure during breast feeding [Recovered/Resolved]
